FAERS Safety Report 4871071-3 (Version None)
Quarter: 2005Q4

REPORT INFORMATION
  Report Type: 
  Country: None (occurrence: None)
  Receive Date: 20051229
  Receipt Date: 20051222
  Transmission Date: 20060501
  Serious: Yes (Hospitalization)
  Sender: FDA-Public Use
  Company Number: S05-FRA-03997-01

PATIENT
  Age: 78 Year
  Sex: Male

DRUGS (6)
  1. CITALOPRAM HYDROBROMIDE [Suspect]
     Dosage: 10 MG QD PO
     Route: 048
     Dates: start: 20050805, end: 20050831
  2. PREVISCAN (FLUINDIONE) [Suspect]
     Dosage: 15 MG QD PO
     Route: 048
     Dates: start: 20050205, end: 20050823
  3. PREVISCAN (FLUINDIONE) [Suspect]
     Dates: start: 20050901
  4. DEPAKIN (VALPROATE SODIUIM) [Concomitant]
  5. VITAMIN B (BEFACT) [Concomitant]
  6. RAMIPRIL [Concomitant]

REACTIONS (4)
  - DRUG INTERACTION [None]
  - HAEMATOMA [None]
  - INTERNATIONAL NORMALISED RATIO INCREASED [None]
  - PROTHROMBIN TIME RATIO DECREASED [None]
